FAERS Safety Report 8521159-0 (Version None)
Quarter: 2012Q3

REPORT INFORMATION
  Report Type: 
  Country: None (occurrence: None)
  Receive Date: 20120719
  Receipt Date: 20120711
  Transmission Date: 20120928
  Serious: Yes (Other)
  Sender: FDA-Public Use
  Company Number: US-ELI_LILLY_AND_COMPANY-US201204009235

PATIENT
  Sex: Female

DRUGS (3)
  1. FORTEO [Suspect]
     Dosage: 20 UG, QD
  2. FORTEO [Suspect]
     Dosage: 20 UG, QD
  3. FORTEO [Suspect]
     Indication: OSTEOPOROSIS
     Dosage: 20 UG, QD
     Dates: start: 20120402

REACTIONS (13)
  - DIZZINESS [None]
  - NERVE INJURY [None]
  - MEMORY IMPAIRMENT [None]
  - ASTHENIA [None]
  - ACCIDENTAL OVERDOSE [None]
  - JOINT INJURY [None]
  - LOSS OF CONSCIOUSNESS [None]
  - FATIGUE [None]
  - SOMNOLENCE [None]
  - FALL [None]
  - GAIT DISTURBANCE [None]
  - THIRST [None]
  - INFLUENZA LIKE ILLNESS [None]
